FAERS Safety Report 25223757 (Version 1)
Quarter: 2025Q2

REPORT INFORMATION
  Report Type: Spontaneous
  Country: JP (occurrence: JP)
  Receive Date: 20250422
  Receipt Date: 20250422
  Transmission Date: 20250717
  Serious: Yes (Other)
  Sender: SANDOZ
  Company Number: JP-SANDOZ-SDZ2024JP039501

PATIENT
  Age: 71 Year
  Sex: Female

DRUGS (1)
  1. ACETAMINOPHEN\TRAMADOL [Suspect]
     Active Substance: ACETAMINOPHEN\TRAMADOL
     Indication: Compression fracture
     Route: 048

REACTIONS (7)
  - Haematochezia [Recovered/Resolved]
  - Hypoaesthesia [Unknown]
  - Muscular weakness [Unknown]
  - Decreased appetite [Unknown]
  - Malaise [Unknown]
  - Thinking abnormal [Unknown]
  - Urine output decreased [Unknown]
